FAERS Safety Report 4459267-6 (Version None)
Quarter: 2004Q3

REPORT INFORMATION
  Report Type: 
  Country: None (occurrence: None)
  Receive Date: 20040927
  Receipt Date: 20040916
  Transmission Date: 20050211
  Serious: Yes (Other)
  Sender: FDA-Public Use
  Company Number: US-JNJFOC-20040906155

PATIENT
  Sex: Female
  Weight: 77.11 kg

DRUGS (1)
  1. ORTHO EVRA [Suspect]
     Route: 062
     Dates: start: 20040801

REACTIONS (6)
  - COMA [None]
  - GRAND MAL CONVULSION [None]
  - METRORRHAGIA [None]
  - OLIGOMENORRHOEA [None]
  - UTERINE SPASM [None]
  - VAGINAL HAEMORRHAGE [None]
